FAERS Safety Report 21580772 (Version 1)
Quarter: 2022Q4

REPORT INFORMATION
  Report Type: Spontaneous
  Country: PT (occurrence: PT)
  Receive Date: 20221111
  Receipt Date: 20221111
  Transmission Date: 20230112
  Serious: Yes (Other)
  Sender: FDA-Public Use
  Company Number: PT-MYLANLABS-2022M1117902

PATIENT
  Sex: Female

DRUGS (11)
  1. PANTOPRAZOLE [Suspect]
     Active Substance: PANTOPRAZOLE
     Indication: Product used for unknown indication
     Dosage: UNK
     Route: 065
  2. ROSUVASTATIN [Suspect]
     Active Substance: ROSUVASTATIN
     Indication: Product used for unknown indication
     Dosage: UNK
     Route: 065
  3. FLUTICASONE PROPIONATE\SALMETEROL XINAFOATE [Suspect]
     Active Substance: FLUTICASONE PROPIONATE\SALMETEROL XINAFOATE
     Indication: Product used for unknown indication
     Dosage: UNK
     Route: 065
  4. VITAMIN D [Suspect]
     Active Substance: VITAMIN D NOS
     Indication: Product used for unknown indication
     Dosage: UNK
     Route: 065
  5. LEVOTHYROXINE [Suspect]
     Active Substance: LEVOTHYROXINE
     Indication: Product used for unknown indication
     Dosage: UNK
     Route: 065
  6. PREDNISOLONE [Suspect]
     Active Substance: PREDNISOLONE
     Indication: Product used for unknown indication
     Dosage: UNK
     Route: 065
  7. TAPENTADOL [Suspect]
     Active Substance: TAPENTADOL
     Indication: Product used for unknown indication
     Dosage: UNK
     Route: 065
  8. EFAVIRENZ [Suspect]
     Active Substance: EFAVIRENZ
     Indication: HIV infection
     Dosage: UNK
     Route: 065
  9. TIOTROPIUM [Suspect]
     Active Substance: TIOTROPIUM
     Indication: Product used for unknown indication
     Dosage: UNK
     Route: 065
  10. LEVOTHYROXINE [Suspect]
     Active Substance: LEVOTHYROXINE
     Indication: Product used for unknown indication
     Dosage: UNK
     Route: 065
  11. EFAVIRENZ\EMTRICITABINE\TENOFOVIR DISOPROXIL FUMARATE [Suspect]
     Active Substance: EFAVIRENZ\EMTRICITABINE\TENOFOVIR DISOPROXIL FUMARATE
     Indication: HIV infection
     Dosage: UNK
     Route: 065

REACTIONS (34)
  - Peptic ulcer [Unknown]
  - HIV infection [Unknown]
  - Post procedural hypothyroidism [Unknown]
  - Polymyalgia rheumatica [Unknown]
  - Leukopenia [Unknown]
  - Abnormal dreams [Unknown]
  - Nasal polyps [Unknown]
  - Arthralgia [Unknown]
  - Osteoporosis [Unknown]
  - Joint stiffness [Unknown]
  - Mouth injury [Unknown]
  - Gastric disorder [Unknown]
  - Gingivitis [Unknown]
  - Degenerative bone disease [Unknown]
  - Gastritis [Unknown]
  - Rhinitis allergic [Unknown]
  - Dry mouth [Unknown]
  - Chronic respiratory disease [Unknown]
  - Helicobacter infection [Recovered/Resolved]
  - Pain [Unknown]
  - Confusional arousal [Unknown]
  - Tongue discomfort [Unknown]
  - Alopecia [Unknown]
  - Anxiety [Unknown]
  - Condition aggravated [Unknown]
  - Dyslipidaemia [Unknown]
  - Osteopenia [Unknown]
  - Paroxysmal extreme pain disorder [Unknown]
  - Weight increased [Unknown]
  - Chronic obstructive pulmonary disease [Unknown]
  - Bundle branch block left [Unknown]
  - Asthma [Unknown]
  - Middle insomnia [Unknown]
  - Tinnitus [Unknown]

NARRATIVE: CASE EVENT DATE: 20220101
